FAERS Safety Report 10173920 (Version 2)
Quarter: 2014Q3

REPORT INFORMATION
  Report Type: Spontaneous
  Country: US (occurrence: US)
  Receive Date: 20140515
  Receipt Date: 20140710
  Transmission Date: 20150326
  Serious: No
  Sender: FDA-Public Use
  Company Number: US-TEVA-481547USA

PATIENT
  Age: 27 Year
  Sex: Female
  Weight: 63.11 kg

DRUGS (2)
  1. PARAGARD T380A [Suspect]
     Active Substance: COPPER
     Indication: CONTRACEPTION
     Route: 015
     Dates: start: 20140501, end: 20140509
  2. PARAGARD T380A [Suspect]
     Active Substance: COPPER
     Route: 015
     Dates: start: 20140509

REACTIONS (4)
  - Uterine spasm [Unknown]
  - Muscle spasms [Unknown]
  - Pain [Unknown]
  - Device expulsion [Recovered/Resolved]

NARRATIVE: CASE EVENT DATE: 20140501
